FAERS Safety Report 5239483-6 (Version None)
Quarter: 2007Q1

REPORT INFORMATION
  Report Type: 
  Country: None (occurrence: None)
  Receive Date: 20070216
  Receipt Date: 20070205
  Transmission Date: 20070707
  Serious: Yes (Hospitalization, Other)
  Sender: FDA-Public Use
  Company Number: BW-BRISTOL-MYERS SQUIBB COMPANY-13639414

PATIENT
  Age: 11 Year
  Sex: Female

DRUGS (8)
  1. STAVUDINE [Suspect]
     Indication: HIV INFECTION
     Route: 048
     Dates: start: 20060922, end: 20070112
  2. LAMIVUDINE [Suspect]
     Indication: HIV INFECTION
     Route: 048
     Dates: start: 20060922, end: 20070112
  3. KALETRA [Suspect]
     Indication: HIV INFECTION
     Dosage: FROM 266/66 MG TWICE DAILY TO 480/66 MG TWICE DAILY
     Route: 048
     Dates: start: 20060922, end: 20061116
  4. KALETRA [Suspect]
     Route: 048
     Dates: start: 20061116, end: 20070112
  5. CO-TRIMOXAZOLE [Concomitant]
     Indication: ANTIFUNGAL PROPHYLAXIS
     Dates: start: 20060901
  6. RIFAMPICIN [Concomitant]
     Indication: TUBERCULOSIS
     Dates: start: 20060918
  7. PYRAZINAMIDE [Concomitant]
     Indication: TUBERCULOSIS
     Dates: start: 20060918
  8. ISONIAZID [Concomitant]
     Indication: TUBERCULOSIS
     Dates: start: 20060918

REACTIONS (2)
  - BILIRUBIN CONJUGATED INCREASED [None]
  - PNEUMOCYSTIS JIROVECI PNEUMONIA [None]
